FAERS Safety Report 18044919 (Version 1)
Quarter: 2020Q3

REPORT INFORMATION
  Report Type: Spontaneous
  Country: US (occurrence: US)
  Receive Date: 20200720
  Receipt Date: 20200720
  Transmission Date: 20201103
  Serious: No
  Sender: FDA-Public Use
  Company Number: US-AMNEAL PHARMACEUTICALS-2020-AMRX-01297

PATIENT
  Age: 65 Year
  Sex: Female
  Weight: 53.9 kg

DRUGS (3)
  1. ESTRADIOL. [Suspect]
     Active Substance: ESTRADIOL
     Dosage: 1 DOSAGE FORM, 2X/WEEK (PINK APPLICATOR)
     Route: 067
     Dates: start: 20200121
  2. ESTRADIOL. [Suspect]
     Active Substance: ESTRADIOL
     Indication: MENOPAUSE
     Dosage: 1 DOSAGE FORM, 2X/WEEK (PINK APPLICATOR)
     Route: 067
  3. ESTRADIOL. [Suspect]
     Active Substance: ESTRADIOL
     Dosage: 1 DOSAGE FORM, 2X/WEEK (BLUE APPLICATOR)
     Route: 067
     Dates: start: 20191118

REACTIONS (2)
  - Product quality issue [Unknown]
  - Vulvovaginal burning sensation [Recovered/Resolved]

NARRATIVE: CASE EVENT DATE: 20191118
